FAERS Safety Report 8200420-3 (Version None)
Quarter: 2012Q1

REPORT INFORMATION
  Report Type: 
  Country: None (occurrence: None)
  Receive Date: 20120309
  Receipt Date: 20120309
  Transmission Date: 20120608
  Serious: No
  Sender: FDA-Public Use
  Company Number: None

PATIENT
  Age: 78 Year
  Sex: Male
  Weight: 83.2 kg

DRUGS (1)
  1. CIPROFLOXACIN [Suspect]
     Dosage: 400 MG ONCE IV
     Route: 042
     Dates: start: 20120302, end: 20120302

REACTIONS (1)
  - INFUSION SITE PHLEBITIS [None]
